FAERS Safety Report 5657362-7 (Version None)
Quarter: 2008Q1

REPORT INFORMATION
  Report Type: 
  Country: None (occurrence: None)
  Receive Date: 20080310
  Receipt Date: 20080229
  Transmission Date: 20080703
  Serious: Yes (Other)
  Sender: FDA-Public Use
  Company Number: PHEH2008US01961

PATIENT
  Age: 81 Year
  Sex: Female

DRUGS (2)
  1. DIOVAN HCT [Suspect]
     Dosage: 160 MGVAL/UNK, UNK
     Route: 065
  2. DIOVAN HCT [Suspect]
     Dosage: 320MGVAL/UNK,UNK
     Route: 065

REACTIONS (2)
  - FATIGUE [None]
  - HEART RATE DECREASED [None]
